FAERS Safety Report 6807697-7 (Version None)
Quarter: 2010Q2

REPORT INFORMATION
  Report Type: 
  Country: None (occurrence: None)
  Receive Date: 20100629
  Receipt Date: 20090227
  Transmission Date: 20101027
  Serious: No
  Sender: FDA-Public Use
  Company Number: US-PFIZER INC-2008092881

PATIENT
  Sex: Male
  Weight: 102 kg

DRUGS (7)
  1. TIKOSYN [Suspect]
     Indication: ARRHYTHMIA
     Dosage: 0.5 MG, 2X/DAY
     Dates: start: 20080901
  2. ATENOLOL [Concomitant]
  3. LISINOPRIL [Concomitant]
  4. AMLODIPINE [Concomitant]
  5. WARFARIN [Concomitant]
  6. ASPIRINE [Concomitant]
  7. LASIX [Concomitant]

REACTIONS (1)
  - DRUG INEFFECTIVE [None]
